FAERS Safety Report 17978110 (Version 1)
Quarter: 2020Q3

REPORT INFORMATION
  Report Type: Report from Study
  Country: IT (occurrence: IT)
  Receive Date: 20200703
  Receipt Date: 20200703
  Transmission Date: 20201103
  Serious: Yes (Hospitalization)
  Sender: FDA-Public Use
  Company Number: IT-ACCORD-188486

PATIENT
  Age: 79 Year
  Sex: Female

DRUGS (11)
  1. CLONAZEPAM. [Suspect]
     Active Substance: CLONAZEPAM
     Indication: PRODUCT USED FOR UNKNOWN INDICATION
  2. PANTOPRAZOLE [Concomitant]
     Active Substance: PANTOPRAZOLE
  3. BISOPROLOL [Concomitant]
     Active Substance: BISOPROLOL
  4. RIVASTIGMINE/RIVASTIGMINE TARTRATE [Suspect]
     Active Substance: RIVASTIGMINE
     Indication: PRODUCT USED FOR UNKNOWN INDICATION
     Route: 062
  5. LASIX [Concomitant]
     Active Substance: FUROSEMIDE
  6. ACETYLCARNITINE [Concomitant]
     Active Substance: ACETYLCARNITINE
  7. TRAZODONE [Suspect]
     Active Substance: TRAZODONE HYDROCHLORIDE
     Indication: PRODUCT USED FOR UNKNOWN INDICATION
  8. CANRENOIC ACID [Concomitant]
     Active Substance: CANRENOIC ACID
  9. QUETIAPINE. [Suspect]
     Active Substance: QUETIAPINE
     Indication: PRODUCT USED FOR UNKNOWN INDICATION
  10. DIGOXIN. [Concomitant]
     Active Substance: DIGOXIN
  11. APIXABAN [Concomitant]
     Active Substance: APIXABAN

REACTIONS (3)
  - Sopor [Recovering/Resolving]
  - Poisoning [Recovering/Resolving]
  - Bradycardia [Recovering/Resolving]

NARRATIVE: CASE EVENT DATE: 20200306
